FAERS Safety Report 16477889 (Version 2)
Quarter: 2019Q2

REPORT INFORMATION
  Report Type: Spontaneous
  Country: US (occurrence: US)
  Receive Date: 20190626
  Receipt Date: 20190628
  Transmission Date: 20190711
  Serious: Yes (Other)
  Sender: FDA-Public Use
  Company Number: US-TORRENT-00008928

PATIENT
  Sex: Female

DRUGS (1)
  1. LOSARTAN. [Suspect]
     Active Substance: LOSARTAN
     Indication: PRODUCT USED FOR UNKNOWN INDICATION
     Dosage: UNKNOWN
     Dates: start: 2017

REACTIONS (4)
  - Ovarian cancer [Unknown]
  - Renal cancer [Unknown]
  - Mastectomy [Unknown]
  - Breast cancer [Unknown]

NARRATIVE: CASE EVENT DATE: 20190207
